FAERS Safety Report 6825476-1 (Version None)
Quarter: 2010Q3

REPORT INFORMATION
  Report Type: 
  Country: None (occurrence: None)
  Receive Date: 20100708
  Receipt Date: 20080625
  Transmission Date: 20110219
  Serious: No
  Sender: FDA-Public Use
  Company Number: US-PFIZER INC-2006109396

PATIENT
  Sex: Female
  Weight: 61.23 kg

DRUGS (3)
  1. CHANTIX [Suspect]
     Indication: SMOKING CESSATION THERAPY
     Route: 048
     Dates: start: 20060801
  2. VYTORIN [Concomitant]
  3. ACETYLSALICYLIC ACID [Concomitant]

REACTIONS (3)
  - ABDOMINAL DISCOMFORT [None]
  - INSOMNIA [None]
  - IRRITABILITY [None]
